FAERS Safety Report 12608049 (Version 1)
Quarter: 2016Q3

REPORT INFORMATION
  Report Type: Spontaneous
  Country: US (occurrence: US)
  Receive Date: 20160729
  Receipt Date: 20160729
  Transmission Date: 20161109
  Serious: No
  Sender: FDA-Public Use
  Company Number: US-AKRIMAX-TIR-2016-0830

PATIENT
  Age: 67 Year
  Sex: Female

DRUGS (1)
  1. TIROSINT [Suspect]
     Active Substance: LEVOTHYROXINE SODIUM
     Indication: HYPOTHYROIDISM
     Dosage: ONCE DAILY
     Route: 048
     Dates: start: 20160709, end: 20160709

REACTIONS (9)
  - Malaise [Unknown]
  - Gait disturbance [Unknown]
  - Mobility decreased [Unknown]
  - Nausea [Unknown]
  - Insomnia [Unknown]
  - Feeding disorder [Unknown]
  - Dizziness [Unknown]
  - Body temperature decreased [Unknown]
  - Dysgeusia [Unknown]

NARRATIVE: CASE EVENT DATE: 20160709
